FAERS Safety Report 8963072 (Version 3)
Quarter: 2013Q1

REPORT INFORMATION
  Report Type: Spontaneous
  Country: FR (occurrence: None)
  Receive Date: 20121205
  Receipt Date: 20130204
  Transmission Date: 20140127
  Serious: Yes (Other)
  Sender: FDA-Public Use
  Company Number: AXC-2012-000561

PATIENT
  Age: 50 Year
  Sex: Male

DRUGS (2)
  1. DELURSAN [Suspect]
     Indication: HEPATIC FIBROSIS
     Dosage: 5 DF, QD, ORAL
     Route: 048
     Dates: start: 201107, end: 20121126
  2. KENZEN [Concomitant]

REACTIONS (3)
  - Pancreatic cyst [None]
  - Weight decreased [None]
  - Hepatic steatosis [None]
